FAERS Safety Report 15752169 (Version 1)
Quarter: 2018Q4

REPORT INFORMATION
  Report Type: Spontaneous
  Country: US (occurrence: US)
  Receive Date: 20181221
  Receipt Date: 20181221
  Transmission Date: 20190205
  Serious: Yes (Other)
  Sender: FDA-Public Use
  Company Number: PHHY2018US187493

PATIENT
  Age: 11 Year
  Sex: Male

DRUGS (1)
  1. TRAMETINIB [Suspect]
     Active Substance: TRAMETINIB
     Indication: PALMOPLANTAR KERATODERMA
     Dosage: 1.5 MG, QD
     Route: 048

REACTIONS (3)
  - Concomitant disease progression [Unknown]
  - Product use in unapproved indication [Unknown]
  - Glioma [Unknown]
